FAERS Safety Report 4322258-X (Version None)
Quarter: 2004Q1

REPORT INFORMATION
  Report Type: 
  Country: None (occurrence: None)
  Receive Date: 20040323
  Receipt Date: 20040312
  Transmission Date: 20041129
  Serious: Yes (Disabling)
  Sender: FDA-Public Use
  Company Number: FLUV00303002140

PATIENT
  Age: 21 Year
  Sex: Female
  Weight: 65 kg

DRUGS (2)
  1. FLUVOXAMINE MALEATE [Suspect]
     Indication: DEPRESSION
     Dosage: 50 MG DAILY PO, 100 MG DAILY PO
     Route: 048
     Dates: start: 20030606, end: 20030624
  2. FLUVOXAMINE MALEATE [Suspect]
     Indication: DEPRESSION
     Dosage: 50 MG DAILY PO, 100 MG DAILY PO
     Route: 048
     Dates: start: 20030624

REACTIONS (2)
  - DEREALISATION [None]
  - DISSOCIATION [None]
